FAERS Safety Report 5993287-5 (Version None)
Quarter: 2008Q4

REPORT INFORMATION
  Report Type: 
  Country: None (occurrence: None)
  Receive Date: 20081210
  Receipt Date: 20081210
  Transmission Date: 20090506
  Serious: Yes (Other)
  Sender: FDA-Public Use
  Company Number: None

PATIENT
  Age: 38 Year
  Sex: Female
  Weight: 68.0396 kg

DRUGS (1)
  1. MEFLOQUINE HCL [Suspect]
     Dosage: ONE WEEKLY PO
     Route: 048
     Dates: start: 20081207

REACTIONS (7)
  - BURNING SENSATION [None]
  - HEADACHE [None]
  - MASS [None]
  - NECK PAIN [None]
  - PAIN IN EXTREMITY [None]
  - PARAESTHESIA [None]
  - PARAESTHESIA ORAL [None]
